FAERS Safety Report 16307396 (Version 1)
Quarter: 2019Q2

REPORT INFORMATION
  Report Type: Other
  Country: CA (occurrence: CA)
  Receive Date: 20190514
  Receipt Date: 20190514
  Transmission Date: 20190711
  Serious: Yes (Other)
  Sender: FDA-Public Use
  Company Number: CA-APOTEX-2019AP013769

PATIENT
  Age: 53 Year
  Sex: Male

DRUGS (4)
  1. PAMIDRONATE DISODIUM. [Suspect]
     Active Substance: PAMIDRONATE DISODIUM
     Indication: HYPERCALCAEMIA
     Dosage: 180 MG, UNKNOWN
     Route: 042
  2. LANREOTIDE [Concomitant]
     Active Substance: LANREOTIDE
     Indication: PANCREATIC NEUROENDOCRINE TUMOUR
     Dosage: 120 ?G, UNKNOWN
     Route: 058
  3. DENOSUMAB [Suspect]
     Active Substance: DENOSUMAB
     Indication: HYPERCALCAEMIA
     Dosage: 60 MG, UNKNOWN
     Route: 058
  4. ZOLEDRONIC ACID [Suspect]
     Active Substance: ZOLEDRONIC ACID
     Indication: HYPERCALCAEMIA
     Dosage: 4 MG, UNKNOWN
     Route: 042

REACTIONS (1)
  - Hypercalcaemia [Unknown]
